FAERS Safety Report 21182826 (Version 10)
Quarter: 2022Q4

REPORT INFORMATION
  Report Type: Report from Study
  Country: MX (occurrence: MX)
  Receive Date: 20220808
  Receipt Date: 20221219
  Transmission Date: 20230112
  Serious: Yes (Life-Threatening, Other)
  Sender: FDA-Public Use
  Company Number: MX-NOVARTISPH-NVSC2022MX178079

PATIENT
  Sex: Female
  Weight: 76 kg

DRUGS (4)
  1. KISQALI [Suspect]
     Active Substance: RIBOCICLIB
     Indication: Breast cancer
     Dosage: UNK
     Route: 048
  2. ALPRAZOLAM [Concomitant]
     Active Substance: ALPRAZOLAM
     Indication: Mental disorder
     Dosage: UNK
     Route: 065
  3. IMIPRAMINE [Concomitant]
     Active Substance: IMIPRAMINE
     Indication: Mental disorder
     Dosage: UNK
     Route: 065
  4. TOPIRAMATE [Concomitant]
     Active Substance: TOPIRAMATE
     Indication: Mental disorder
     Dosage: UNK
     Route: 065

REACTIONS (40)
  - Metastases to bone [Unknown]
  - Metastases to bone marrow [Unknown]
  - Hip fracture [Unknown]
  - Skin cancer [Not Recovered/Not Resolved]
  - Second primary malignancy [Unknown]
  - Hallucination [Unknown]
  - Gait disturbance [Not Recovered/Not Resolved]
  - Exercise tolerance decreased [Unknown]
  - Tremor [Unknown]
  - Hypokinesia [Unknown]
  - Dysstasia [Unknown]
  - Dizziness [Unknown]
  - Movement disorder [Unknown]
  - Nausea [Unknown]
  - Decreased appetite [Unknown]
  - Vomiting [Unknown]
  - Asthenia [Not Recovered/Not Resolved]
  - Pollakiuria [Unknown]
  - Crying [Unknown]
  - Dry mouth [Unknown]
  - Dry throat [Unknown]
  - Lung disorder [Unknown]
  - Fall [Unknown]
  - Lower limb fracture [Not Recovered/Not Resolved]
  - Depression [Unknown]
  - Arthralgia [Unknown]
  - Weight decreased [Unknown]
  - Fracture pain [Unknown]
  - Chest pain [Unknown]
  - Facial discomfort [Unknown]
  - Oropharyngeal discomfort [Unknown]
  - Road traffic accident [Unknown]
  - Sciatica [Unknown]
  - Hair disorder [Unknown]
  - Somnolence [Unknown]
  - Balance disorder [Unknown]
  - Amnesia [Unknown]
  - Fear [Unknown]
  - Back pain [Unknown]
  - Fatigue [Unknown]
